FAERS Safety Report 20298460 (Version 1)
Quarter: 2022Q1

REPORT INFORMATION
  Report Type: Spontaneous
  Country: US (occurrence: None)
  Receive Date: 20220104
  Receipt Date: 20220104
  Transmission Date: 20220423
  Serious: Yes (Hospitalization)
  Sender: FDA-Public Use
  Company Number: None

PATIENT
  Age: 60 Year
  Sex: Male

DRUGS (1)
  1. METHOTREXATE [Suspect]
     Active Substance: METHOTREXATE
     Indication: Crohn^s disease
     Dates: start: 20211008, end: 20211203

REACTIONS (6)
  - Thrombocytopenia [None]
  - Anaemia [None]
  - Acute kidney injury [None]
  - Acute kidney injury [None]
  - Pancytopenia [None]
  - Mucosal inflammation [None]

NARRATIVE: CASE EVENT DATE: 20211203
